FAERS Safety Report 10555556 (Version 2)
Quarter: 2014Q4

REPORT INFORMATION
  Report Type: Report from Study
  Country: DE (occurrence: DE)
  Receive Date: 20141030
  Receipt Date: 20141030
  Transmission Date: 20150529
  Serious: Yes (Hospitalization, Other)
  Sender: FDA-Public Use
  Company Number: DE-ABBVIE-14P-062-1257904-00

PATIENT
  Age: 45 Year
  Sex: Female

DRUGS (1)
  1. HUMIRA [Suspect]
     Active Substance: ADALIMUMAB
     Indication: CROHN^S DISEASE
     Route: 058
     Dates: start: 2005, end: 2014

REACTIONS (13)
  - Female genital tract fistula [Unknown]
  - Dizziness [Recovered/Resolved]
  - Anal fistula [Unknown]
  - Iron deficiency anaemia [Recovered/Resolved]
  - Intestinal anastomosis [Unknown]
  - Palpitations [Recovered/Resolved]
  - Platelet count increased [Unknown]
  - Hospitalisation [Unknown]
  - Femoral neck fracture [Unknown]
  - Central venous catheterisation [Unknown]
  - Ileocolostomy [Unknown]
  - Neurodermatitis [Recovered/Resolved]
  - C-reactive protein increased [Unknown]

NARRATIVE: CASE EVENT DATE: 2009
